FAERS Safety Report 10206037 (Version 1)
Quarter: 2014Q2

REPORT INFORMATION
  Report Type: Report from Study
  Country: GB (occurrence: GB)
  Receive Date: 20140530
  Receipt Date: 20140530
  Transmission Date: 20141212
  Serious: Yes (Other)
  Sender: FDA-Public Use
  Company Number: GB-MERCK-1405GBR013868

PATIENT
  Age: 73 Year
  Sex: Female

DRUGS (2)
  1. AZACITIDINE [Suspect]
     Indication: ACUTE MYELOID LEUKAEMIA
     Dosage: 135 MG/M2, QD
     Route: 058
     Dates: start: 20140203, end: 20140408
  2. VORINOSTAT [Suspect]
     Indication: ACUTE MYELOID LEUKAEMIA
     Dosage: 300 MG, BID
     Route: 048
     Dates: start: 20140205, end: 20140408

REACTIONS (1)
  - Febrile neutropenia [Recovered/Resolved]
